FAERS Safety Report 9644393 (Version 2)
Quarter: 2014Q1

REPORT INFORMATION
  Report Type: Spontaneous
  Country: US (occurrence: US)
  Receive Date: 20131025
  Receipt Date: 20140211
  Transmission Date: 20141002
  Serious: Yes (Other)
  Sender: FDA-Public Use
  Company Number: US-JNJFOC-20131010079

PATIENT
  Age: 73 Year
  Sex: Female

DRUGS (3)
  1. VISINE [Suspect]
     Route: 047
  2. VISINE [Suspect]
     Indication: EYE PRURITUS
     Route: 047
     Dates: start: 20130812, end: 20130912
  3. KETOTIFEN [Interacting]
     Indication: EYE PRURITUS
     Dosage: ONE DROP EACH EYE
     Route: 047
     Dates: start: 20130912

REACTIONS (5)
  - Burning sensation [Recovered/Resolved]
  - Dry skin [Recovered/Resolved]
  - Eye irritation [Recovered/Resolved]
  - Thermal burn [Not Recovered/Not Resolved]
  - Drug interaction [Unknown]
